FAERS Safety Report 10481753 (Version 2)
Quarter: 2014Q4

REPORT INFORMATION
  Report Type: Report from Study
  Country: MX (occurrence: MX)
  Receive Date: 20140929
  Receipt Date: 20141010
  Transmission Date: 20150528
  Serious: Yes (Other)
  Sender: FDA-Public Use
  Company Number: PHHY2014MX122590

PATIENT
  Age: 81 Year
  Sex: Male

DRUGS (1)
  1. ONBREZ [Suspect]
     Active Substance: INDACATEROL
     Indication: LUNG DISORDER
     Dosage: 2 DF, CAPSULE DAILY
     Route: 055

REACTIONS (3)
  - Blindness [Not Recovered/Not Resolved]
  - Fall [Unknown]
  - Rhinorrhoea [Not Recovered/Not Resolved]
